FAERS Safety Report 5607395-1 (Version None)
Quarter: 2008Q1

REPORT INFORMATION
  Report Type: 
  Country: None (occurrence: None)
  Receive Date: 20080128
  Receipt Date: 20080128
  Transmission Date: 20080703
  Serious: Yes (Hospitalization)
  Sender: FDA-Public Use
  Company Number: None

PATIENT
  Sex: Female
  Weight: 16.3 kg

DRUGS (10)
  1. METHOTREXATE [Suspect]
     Dosage: 12 MG
     Route: 037
  2. DEXAMETHASONE TAB [Suspect]
     Dosage: 2 MG
  3. PEG-L- ASPARAGINASE (K-H) [Suspect]
     Dosage: 1750 IU
  4. VINCRISTINE [Suspect]
     Dosage: 1 MG
  5. CYTARABINE [Suspect]
     Dosage: 70 MG
     Route: 037
  6. IMMUNE GLOBULIN INTRAVENOUS (HUMAN) [Concomitant]
  7. BACTRIM [Concomitant]
  8. LANSOPRAZOLE [Concomitant]
  9. NEURONTIN [Concomitant]
  10. SOLU-MEDROL [Concomitant]

REACTIONS (1)
  - ARACHNOIDITIS [None]
